FAERS Safety Report 6993640-7 (Version None)
Quarter: 2010Q3

REPORT INFORMATION
  Report Type: 
  Country: None (occurrence: None)
  Receive Date: 20100917
  Receipt Date: 20100115
  Transmission Date: 20110219
  Serious: Yes (Hospitalization)
  Sender: FDA-Public Use
  Company Number: US-ASTRAZENECA-2009SE17829

PATIENT
  Age: 10268 Day
  Sex: Male

DRUGS (5)
  1. SEROQUEL [Suspect]
     Indication: SCHIZOAFFECTIVE DISORDER
     Route: 048
     Dates: start: 20010416, end: 20030101
  2. COGENTIN [Concomitant]
     Dosage: 1 TO 2 MG HS
     Dates: start: 20010416
  3. CELEXA [Concomitant]
     Dates: start: 20010416
  4. HALDOL [Concomitant]
     Dosage: 75 TO 150 MG IM
     Dates: start: 20010416
  5. LIPITOR [Concomitant]
     Indication: BLOOD CHOLESTEROL INCREASED
     Dates: start: 20040229

REACTIONS (1)
  - TYPE 2 DIABETES MELLITUS [None]
